FAERS Safety Report 7866319-7 (Version None)
Quarter: 2011Q4

REPORT INFORMATION
  Report Type: 
  Country: None (occurrence: None)
  Receive Date: 20111028
  Receipt Date: 20110531
  Transmission Date: 20120403
  Serious: No
  Sender: FDA-Public Use
  Company Number: US-GLAXOSMITHKLINE-A0929681A

PATIENT
  Age: 67 Year
  Sex: Female

DRUGS (4)
  1. DELSYM [Concomitant]
  2. ADVAIR DISKUS 100/50 [Suspect]
     Indication: CHRONIC OBSTRUCTIVE PULMONARY DISEASE
     Dosage: 1PUFF TWICE PER DAY
     Route: 055
     Dates: start: 20100719
  3. CENTRUM [Concomitant]
  4. FISH OIL [Concomitant]

REACTIONS (3)
  - BRONCHITIS [None]
  - BACK PAIN [None]
  - COUGH [None]
